FAERS Safety Report 20835248 (Version 1)
Quarter: 2022Q2

REPORT INFORMATION
  Report Type: Spontaneous
  Country: US (occurrence: US)
  Receive Date: 20220516
  Receipt Date: 20220516
  Transmission Date: 20220721
  Serious: No
  Sender: FDA-Public Use
  Company Number: US-PFIZER INC-202101483171

PATIENT
  Age: 68 Year
  Sex: Female
  Weight: 50.8 kg

DRUGS (3)
  1. CELECOXIB [Suspect]
     Active Substance: CELECOXIB
     Indication: Osteoarthritis
     Dosage: UNK
  2. CELECOXIB [Suspect]
     Active Substance: CELECOXIB
     Indication: Scoliosis
  3. CELECOXIB [Suspect]
     Active Substance: CELECOXIB
     Indication: Pain

REACTIONS (1)
  - Therapeutic product effect incomplete [Unknown]
